FAERS Safety Report 4804595-5 (Version None)
Quarter: 2005Q4

REPORT INFORMATION
  Report Type: 
  Country: None (occurrence: None)
  Receive Date: 20051020
  Receipt Date: 20051014
  Transmission Date: 20060501
  Serious: Yes (Death, Life-Threatening, Hospitalization, Disabling)
  Sender: FDA-Public Use
  Company Number: 2005GB02022

PATIENT
  Age: 30258 Day
  Sex: Female

DRUGS (3)
  1. NOLVADEX [Suspect]
     Indication: BREAST CANCER
     Route: 048
     Dates: start: 19980417, end: 20030415
  2. FUROSEMIDE [Concomitant]
     Indication: PULMONARY OEDEMA
     Dates: start: 20030404
  3. POTASSIUM SUPPLEMENT [Concomitant]
     Indication: OEDEMA
     Dates: start: 20030404

REACTIONS (1)
  - CEREBROVASCULAR ACCIDENT [None]
